FAERS Safety Report 26210879 (Version 1)
Quarter: 2025Q4

REPORT INFORMATION
  Report Type: Spontaneous
  Country: US (occurrence: US)
  Receive Date: 20251230
  Receipt Date: 20251230
  Transmission Date: 20260117
  Serious: Yes (Other)
  Sender: SANOFI AVENTIS
  Company Number: US-SA-2025SA270656

PATIENT
  Age: 65 Year
  Sex: Male
  Weight: 109.76 kg

DRUGS (21)
  1. DUPIXENT [Suspect]
     Active Substance: DUPILUMAB
     Indication: Nasal polyps
     Dosage: 300 MG, QOW
     Route: 058
     Dates: end: 2025
  2. ONDANSETRON HYDROCHLORIDE [Concomitant]
     Active Substance: ONDANSETRON HYDROCHLORIDE
     Dosage: UNK
  3. DEXAMETHASONE [Concomitant]
     Active Substance: DEXAMETHASONE
     Dosage: UNK
  4. LOSARTAN POTASSIUM [Concomitant]
     Active Substance: LOSARTAN POTASSIUM
     Dosage: UNK
  5. JARDIANCE [Concomitant]
     Active Substance: EMPAGLIFLOZIN
     Dosage: UNK
  6. MAG GLYCINATE [Concomitant]
     Dosage: UNK
  7. TADALAFIL [Concomitant]
     Active Substance: TADALAFIL
     Dosage: UNK
  8. MELATONIN [Concomitant]
     Active Substance: MELATONIN
     Dosage: UNK
  9. FISH OIL [Concomitant]
     Active Substance: FISH OIL
     Dosage: UNK
  10. MONTELUKAST SODIUM [Concomitant]
     Active Substance: MONTELUKAST SODIUM
     Dosage: UNK
  11. FINASTERIDE [Concomitant]
     Active Substance: FINASTERIDE
     Dosage: UNK
  12. ATORVASTATIN CALCIUM [Concomitant]
     Active Substance: ATORVASTATIN CALCIUM
     Dosage: UNK
  13. CELEBREX [Concomitant]
     Active Substance: CELECOXIB
     Dosage: UNK
  14. JANUVIA [Concomitant]
     Active Substance: SITAGLIPTIN PHOSPHATE
     Dosage: UNK
  15. METFORMIN HYDROCHLORIDE [Concomitant]
     Active Substance: METFORMIN HYDROCHLORIDE
     Dosage: UNK
  16. VITAMINS [Concomitant]
     Active Substance: VITAMINS
     Dosage: UNK
  17. TYLENOL [Concomitant]
     Active Substance: ACETAMINOPHEN
     Dosage: UNK
  18. CELEBREX [Concomitant]
     Active Substance: CELECOXIB
     Dosage: UNK
  19. METOPROLOL SUCCINATE [Concomitant]
     Active Substance: METOPROLOL SUCCINATE
     Dosage: UNK
  20. LISINOPRIL [Concomitant]
     Active Substance: LISINOPRIL
     Dosage: UNK
  21. ACETAMINOPHEN [Concomitant]
     Active Substance: ACETAMINOPHEN
     Dosage: UNK

REACTIONS (2)
  - Hip arthroplasty [Unknown]
  - Pruritus [Unknown]

NARRATIVE: CASE EVENT DATE: 20250101
